FAERS Safety Report 8909600 (Version 1)
Quarter: 2012Q4

REPORT INFORMATION
  Report Type: 
  Country: US (occurrence: US)
  Receive Date: 20121115
  Receipt Date: 20121115
  Transmission Date: 20130627
  Serious: Yes (Hospitalization)
  Sender: FDA-Public Use
  Company Number: US-BAYER-2012-116574

PATIENT
  Age: 47 Year
  Sex: Female
  Weight: 88.63 kg

DRUGS (3)
  1. YAZ [Suspect]
  2. PROAIR HFA [Concomitant]
  3. XOPENEX [Concomitant]

REACTIONS (1)
  - Deep vein thrombosis [None]
